FAERS Safety Report 25722724 (Version 1)
Quarter: 2025Q3

REPORT INFORMATION
  Report Type: Spontaneous
  Country: US (occurrence: US)
  Receive Date: 20250825
  Receipt Date: 20250825
  Transmission Date: 20251020
  Serious: No
  Sender: TAKEDA
  Company Number: US-TAKEDA-2025TUS074290

PATIENT
  Sex: Male
  Weight: 97 kg

DRUGS (2)
  1. LIALDA [Suspect]
     Active Substance: MESALAMINE
     Indication: Colitis ulcerative
     Dosage: UNK UNK, QD
  2. RINVOQ [Concomitant]
     Active Substance: UPADACITINIB
     Indication: Colitis ulcerative

REACTIONS (2)
  - No adverse event [Unknown]
  - Product use issue [Unknown]
